FAERS Safety Report 9012017 (Version 1)
Quarter: 2012Q4

REPORT INFORMATION
  Report Type: Spontaneous
  Country: FR (occurrence: None)
  Receive Date: 20121228
  Receipt Date: 20121228
  Transmission Date: 20130627
  Serious: Yes (Death)
  Sender: FDA-Public Use
  Company Number: DSA_61565_2012

PATIENT

DRUGS (4)
  1. FLUOROURACIL [Suspect]
     Indication: COLON CANCER
     Dosage: (400 mg/m2; every other week Intravenous bolus)
     Route: 040
  2. FLUOROURACIL [Suspect]
     Indication: COLON CANCER
     Dosage: (600 mg/m2, every other week)
  3. OXALIPLATIN (OXALIPLATIN) [Suspect]
     Indication: COLON CANCER
     Dosage: (85 mg/m2; every other week Intravenous (not otherwise specified))
     Route: 042
  4. LEUCOVORIN [Suspect]
     Indication: COLON CANCER
     Dosage: (200 mg/m2, every other week Intravenous (not otherwise specified))
     Route: 042

REACTIONS (1)
  - Myocardial ischaemia [None]
